FAERS Safety Report 21540247 (Version 1)
Quarter: 2022Q4

REPORT INFORMATION
  Report Type: Other
  Country: US (occurrence: None)
  Receive Date: 20221102
  Receipt Date: 20221102
  Transmission Date: 20230113
  Serious: Yes (Other)
  Sender: FDA-Public Use
  Company Number: US-ROCHE-3206017

PATIENT
  Age: 31 Year
  Sex: Male
  Weight: 71.278 kg

DRUGS (6)
  1. OCREVUS [Suspect]
     Active Substance: OCRELIZUMAB
     Indication: Relapsing multiple sclerosis
     Route: 042
     Dates: start: 202105
  2. OCREVUS [Suspect]
     Active Substance: OCRELIZUMAB
     Dosage: DATE OF TREATMENT:20/JUN/2022,20/DEC/2021,09/JUN/2021
     Route: 042
  3. CLONAZEPAM [Suspect]
     Active Substance: CLONAZEPAM
     Indication: Product used for unknown indication
     Route: 065
     Dates: start: 201712
  4. LIORESAL [Concomitant]
     Active Substance: BACLOFEN
     Route: 048
  5. XANAX [Concomitant]
     Active Substance: ALPRAZOLAM
  6. KEPPRA [Concomitant]
     Active Substance: LEVETIRACETAM

REACTIONS (13)
  - Speech disorder [Unknown]
  - Dysphagia [Unknown]
  - Musculoskeletal stiffness [Unknown]
  - Pneumonia aspiration [Unknown]
  - Rash [Recovered/Resolved]
  - Fall [Unknown]
  - Hypokinesia [Unknown]
  - Skin laceration [Unknown]
  - Memory impairment [Unknown]
  - Disturbance in attention [Unknown]
  - Visual impairment [Unknown]
  - Urinary incontinence [Unknown]
  - Drug ineffective [Unknown]

NARRATIVE: CASE EVENT DATE: 20210501
